FAERS Safety Report 14767742 (Version 1)
Quarter: 2018Q2

REPORT INFORMATION
  Report Type: Report from Study
  Country: US (occurrence: US)
  Receive Date: 20180417
  Receipt Date: 20180417
  Transmission Date: 20180711
  Serious: Yes (Hospitalization, Other)
  Sender: FDA-Public Use
  Company Number: US-GILEAD-2018-0333390

PATIENT
  Age: 63 Year
  Sex: Female

DRUGS (3)
  1. VELETRI [Concomitant]
     Active Substance: EPOPROSTENOL
     Indication: PULMONARY HYPERTENSION
     Dates: start: 201612
  2. SILDENAFIL. [Concomitant]
     Active Substance: SILDENAFIL
     Indication: PULMONARY HYPERTENSION
     Dates: start: 201612
  3. AMBRISENTAN [Suspect]
     Active Substance: AMBRISENTAN
     Indication: PULMONARY ARTERIAL HYPERTENSION
     Dosage: 10 MG, QD
     Route: 065
     Dates: start: 201612

REACTIONS (4)
  - Limb injury [Unknown]
  - Fall [Unknown]
  - Haemorrhage intracranial [Recovered/Resolved]
  - Head injury [Unknown]

NARRATIVE: CASE EVENT DATE: 201711
